FAERS Safety Report 4871220-7 (Version None)
Quarter: 2006Q1

REPORT INFORMATION
  Report Type: 
  Country: None (occurrence: None)
  Receive Date: 20060103
  Receipt Date: 20051102
  Transmission Date: 20060701
  Serious: Yes (Hospitalization)
  Sender: FDA-Public Use
  Company Number: JP-ABBOTT-05P-087-0316734-00

PATIENT
  Sex: Male

DRUGS (11)
  1. CLARITHROMYCIN [Suspect]
     Indication: DRUG USE FOR UNKNOWN INDICATION
     Route: 048
     Dates: start: 20051007, end: 20051010
  2. CLARITHROMYCIN [Suspect]
     Indication: MALAISE
  3. ORUDIS [Suspect]
     Indication: DRUG USE FOR UNKNOWN INDICATION
     Route: 048
     Dates: start: 20051007, end: 20051010
  4. ORUDIS [Suspect]
     Indication: MALAISE
  5. SOFALCONE [Suspect]
     Indication: DRUG USE FOR UNKNOWN INDICATION
     Route: 048
     Dates: start: 20051007, end: 20051010
  6. SOFALCONE [Suspect]
     Indication: MALAISE
  7. DEXTROMETHORPHAN HYDROBROMIDE [Suspect]
     Indication: DRUG USE FOR UNKNOWN INDICATION
     Route: 048
     Dates: start: 20051007, end: 20051010
  8. DEXTROMETHORPHAN HYDROBROMIDE [Suspect]
     Indication: MALAISE
  9. UNKNOWN DRUG [Suspect]
     Indication: DRUG USE FOR UNKNOWN INDICATION
     Route: 048
     Dates: start: 20051007, end: 20051010
  10. UNKNOWN DRUG [Suspect]
     Indication: MALAISE
  11. STAR [Suspect]
     Indication: DRUG USE FOR UNKNOWN INDICATION
     Dates: start: 20050928, end: 20051001

REACTIONS (1)
  - INTERSTITIAL LUNG DISEASE [None]
